FAERS Safety Report 4936756-9 (Version None)
Quarter: 2006Q1

REPORT INFORMATION
  Report Type: 
  Country: None (occurrence: None)
  Receive Date: 20060302
  Receipt Date: 20060207
  Transmission Date: 20060701
  Serious: Yes (Death, Other)
  Sender: FDA-Public Use
  Company Number: US200602001593

PATIENT
  Age: 43 Year
  Sex: Male

DRUGS (1)
  1. ZYPREXA [Suspect]
     Indication: SCHIZOPHRENIA, PARANOID TYPE

REACTIONS (5)
  - CARDIOMEGALY [None]
  - HYPERTENSION [None]
  - KIDNEY ENLARGEMENT [None]
  - RENAL DISORDER [None]
  - WEIGHT INCREASED [None]
